FAERS Safety Report 5032528-8 (Version None)
Quarter: 2006Q2

REPORT INFORMATION
  Report Type: 
  Country: None (occurrence: None)
  Receive Date: 20060515
  Receipt Date: 20060117
  Transmission Date: 20061013
  Serious: No
  Sender: FDA-Public Use
  Company Number: S06-USA-00226-01

PATIENT
  Age: 93 Year
  Sex: Female

DRUGS (10)
  1. NAMENDA [Suspect]
     Indication: MEMORY IMPAIRMENT
     Dosage: 5 MG BID PO
     Route: 048
     Dates: start: 20060106, end: 20060112
  2. NAMENDA [Suspect]
     Indication: MEMORY IMPAIRMENT
     Dosage: 5 MG QD PO
     Route: 048
     Dates: start: 20051230, end: 20060105
  3. NAMENDA [Suspect]
     Indication: MEMORY IMPAIRMENT
     Dosage: 15 MG QD PO
     Route: 048
     Dates: start: 20060113, end: 20060116
  4. CARDIZEM [Concomitant]
  5. LASIX [Concomitant]
  6. FOLTX (FOLIC ACID, VITAMIN B12, VITAMIN B6) [Concomitant]
  7. FOSAMAX [Concomitant]
  8. OCUVITE (MULTIVITAMIN) [Concomitant]
  9. MULTI-VITAMIN [Concomitant]
  10. CALCIUM GLUCONATE [Concomitant]

REACTIONS (2)
  - CONFUSIONAL STATE [None]
  - VISUAL DISTURBANCE [None]
